FAERS Safety Report 8085308 (Version 2)
Quarter: 2019Q1

REPORT INFORMATION
  Report Type: Spontaneous
  Country: FR (occurrence: FR)
  Receive Date: 20110803
  Receipt Date: 20190228
  Transmission Date: 20190418
  Serious: Yes (Hospitalization, Other)
  Sender: FDA-Public Use
  Company Number: FR-ACCORD-009281

PATIENT
  Age: 55 Year
  Sex: Male

DRUGS (3)
  1. DOCETAXEL. [Suspect]
     Active Substance: DOCETAXEL
     Indication: HEAD AND NECK CANCER
     Dosage: DAY 01
  2. CISPLATIN. [Suspect]
     Active Substance: CISPLATIN
     Indication: HEAD AND NECK CANCER
     Dosage: DAY 01
  3. FLUOROURACIL. [Suspect]
     Active Substance: FLUOROURACIL
     Indication: HEAD AND NECK CANCER

REACTIONS (8)
  - Metabolic encephalopathy [Recovered/Resolved]
  - Off label use [Unknown]
  - Mucosal inflammation [Unknown]
  - Sepsis [Recovered/Resolved]
  - Seizure [Recovered/Resolved]
  - Loss of consciousness [Recovered/Resolved]
  - Neutropenia [Recovered/Resolved]
  - Skin toxicity [Unknown]
